FAERS Safety Report 4877881-0 (Version None)
Quarter: 2006Q1

REPORT INFORMATION
  Report Type: 
  Country: None (occurrence: None)
  Receive Date: 20060109
  Receipt Date: 20051229
  Transmission Date: 20060701
  Serious: Yes (Other)
  Sender: FDA-Public Use
  Company Number: 200514897BCC

PATIENT
  Age: 51 Year
  Sex: Female
  Weight: 90.7194 kg

DRUGS (1)
  1. ALEVE COLD + SINUS CAPLETS (NAPROXEN SODIUM W/PSEUDOPHEDRINE HCL) [Suspect]
     Indication: NASOPHARYNGITIS
     Dosage: 220 MG, QD, ORAL
     Route: 048
     Dates: start: 20050701

REACTIONS (5)
  - AGEUSIA [None]
  - ANOSMIA [None]
  - DRUG INEFFECTIVE [None]
  - NASOPHARYNGITIS [None]
  - NERVE INJURY [None]
